FAERS Safety Report 25598201 (Version 1)
Quarter: 2025Q3

REPORT INFORMATION
  Report Type: Report from Study
  Country: BR (occurrence: BR)
  Receive Date: 20250723
  Receipt Date: 20250723
  Transmission Date: 20251021
  Serious: Yes (Other)
  Sender: TAKEDA
  Company Number: BR-TAKEDA-2025TUS065843

PATIENT
  Age: 91 Year

DRUGS (1)
  1. ANTI-INHIBITOR COAGULANT COMPLEX [Suspect]
     Active Substance: ANTI-INHIBITOR COAGULANT COMPLEX
     Indication: Haemophilia A with anti factor VIII
     Dosage: UNK UNK, 3/WEEK
     Dates: start: 201605, end: 202204

REACTIONS (1)
  - Treatment failure [Unknown]
